FAERS Safety Report 5969687-6 (Version None)
Quarter: 2008Q4

REPORT INFORMATION
  Report Type: 
  Country: None (occurrence: None)
  Receive Date: 20081126
  Receipt Date: 20080916
  Transmission Date: 20090506
  Serious: No
  Sender: FDA-Public Use
  Company Number: US-ABBOTT-08P-163-0476930-00

PATIENT
  Sex: Male
  Weight: 77.18 kg

DRUGS (2)
  1. SIMCOR [Suspect]
     Indication: BLOOD TRIGLYCERIDES INCREASED
     Dosage: 500/20 MG DAILY AT NIGHT
     Route: 048
     Dates: start: 20080626, end: 20080629
  2. SIMCOR [Suspect]
     Indication: BLOOD CHOLESTEROL INCREASED

REACTIONS (5)
  - BLOOD GLUCOSE INCREASED [None]
  - HEART RATE DECREASED [None]
  - HYPERSENSITIVITY [None]
  - LOSS OF CONSCIOUSNESS [None]
  - SYNCOPE [None]
